FAERS Safety Report 23083090 (Version 1)
Quarter: 2023Q4

REPORT INFORMATION
  Report Type: Spontaneous
  Country: US (occurrence: None)
  Receive Date: 20231017
  Receipt Date: 20231017
  Transmission Date: 20240110
  Serious: Yes (Hospitalization)
  Sender: FDA-Public Use
  Company Number: None

PATIENT
  Age: 68 Year
  Sex: Male

DRUGS (1)
  1. EMPAGLIFLOZIN [Suspect]
     Active Substance: EMPAGLIFLOZIN
     Dosage: OTHER FREQUENCY   EVERY: AM;?
     Route: 048
     Dates: start: 20220627, end: 20221117

REACTIONS (2)
  - Cystitis [None]
  - Urinary tract infection [None]

NARRATIVE: CASE EVENT DATE: 20221117
